FAERS Safety Report 19426271 (Version 1)
Quarter: 2021Q2

REPORT INFORMATION
  Report Type: Spontaneous
  Country: US (occurrence: US)
  Receive Date: 20210616
  Receipt Date: 20210616
  Transmission Date: 20210717
  Serious: Yes (Other)
  Sender: FDA-Public Use
  Company Number: 2020SGN02934

PATIENT
  Sex: Female

DRUGS (4)
  1. XELODA [Suspect]
     Active Substance: CAPECITABINE
     Indication: PRODUCT USED FOR UNKNOWN INDICATION
  2. TUKYSA [Suspect]
     Active Substance: TUCATINIB
     Dosage: UNK
  3. TUKYSA [Suspect]
     Active Substance: TUCATINIB
     Indication: BREAST CANCER FEMALE
     Dosage: UNK, BID
  4. HERCEPTIN [Suspect]
     Active Substance: TRASTUZUMAB
     Indication: BREAST CANCER FEMALE

REACTIONS (8)
  - Anxiety [Unknown]
  - Hospice care [Unknown]
  - Product dose omission issue [Unknown]
  - White blood cell count decreased [Unknown]
  - Thrombocytopenia [Unknown]
  - Memory impairment [Unknown]
  - Asthenia [Recovering/Resolving]
  - Rash [Unknown]
